FAERS Safety Report 8908742 (Version 1)
Quarter: 2012Q4

REPORT INFORMATION
  Report Type: 
  Country: VE (occurrence: VE)
  Receive Date: 20121114
  Receipt Date: 20121114
  Transmission Date: 20130627
  Serious: Yes (Hospitalization)
  Sender: FDA-Public Use
  Company Number: VE-ELI_LILLY_AND_COMPANY-VE201211000149

PATIENT
  Age: 69 Year
  Sex: Male

DRUGS (2)
  1. HUMALOG 25% LISPRO, 75% NPL [Suspect]
     Indication: TYPE 2 DIABETES MELLITUS
     Dosage: 12 u, each morning
     Route: 058
     Dates: start: 20121012
  2. HUMALOG 25% LISPRO, 75% NPL [Suspect]
     Dosage: 6 u, each evening
     Route: 058
     Dates: start: 20121012

REACTIONS (3)
  - Blood glucose increased [Recovered/Resolved]
  - Oedema peripheral [Not Recovered/Not Resolved]
  - Unevaluable event [Recovered/Resolved]
